FAERS Safety Report 18218008 (Version 1)
Quarter: 2020Q3

REPORT INFORMATION
  Report Type: Spontaneous
  Country: US (occurrence: US)
  Receive Date: 20200831
  Receipt Date: 20200831
  Transmission Date: 20201103
  Serious: No
  Sender: FDA-Public Use
  Company Number: None

PATIENT
  Age: 67 Year
  Sex: Male

DRUGS (1)
  1. DIAZEPAM (DIAZEPAM 10MG CAP) [Suspect]
     Active Substance: DIAZEPAM
     Dates: start: 20200618

REACTIONS (1)
  - Sleep apnoea syndrome [None]

NARRATIVE: CASE EVENT DATE: 20200618
